FAERS Safety Report 9944368 (Version 1)
Quarter: 2014Q1

REPORT INFORMATION
  Report Type: Report from Study
  Country: US (occurrence: US)
  Receive Date: 20140303
  Receipt Date: 20140303
  Transmission Date: 20141002
  Serious: No
  Sender: FDA-Public Use
  Company Number: US-ABBVIE-13P-163-1050188-00

PATIENT
  Age: 35 Year
  Sex: Male

DRUGS (2)
  1. HUMIRA [Suspect]
     Indication: CROHN^S DISEASE
     Dates: start: 20120920
  2. HUMIRA [Suspect]
     Dates: start: 20130213

REACTIONS (2)
  - Intestinal ulcer [Not Recovered/Not Resolved]
  - Colitis [Not Recovered/Not Resolved]
